FAERS Safety Report 15275956 (Version 1)
Quarter: 2018Q3

REPORT INFORMATION
  Report Type: Spontaneous
  Country: HU (occurrence: HU)
  Receive Date: 20180814
  Receipt Date: 20180814
  Transmission Date: 20181010
  Serious: Yes (Other)
  Sender: FDA-Public Use
  Company Number: HU-LPDUSPRD-20181437

PATIENT
  Age: 6 Week

DRUGS (1)
  1. FERINJECT [Suspect]
     Active Substance: FERRIC CARBOXYMALTOSE
     Dosage: UNKNOWN
     Route: 063

REACTIONS (2)
  - Maternal exposure during breast feeding [Unknown]
  - Adverse reaction [Unknown]
